FAERS Safety Report 15139053 (Version 1)
Quarter: 2018Q3

REPORT INFORMATION
  Report Type: Spontaneous
  Country: US (occurrence: US)
  Receive Date: 20180618
  Receipt Date: 20180618
  Transmission Date: 20181010
  Serious: No
  Sender: FDA-Public Use
  Company Number: None

PATIENT
  Age: 76 Year
  Sex: Female

DRUGS (1)
  1. IBRANCE [Suspect]
     Active Substance: PALBOCICLIB
     Indication: BREAST CANCER
     Dosage: 75MG DAILY FOR 21 DAYS OF AS 28 DAY CYCLE BY MOUTH
     Route: 048
     Dates: start: 20171115, end: 20180404

REACTIONS (1)
  - Positron emission tomogram abnormal [None]

NARRATIVE: CASE EVENT DATE: 20180404
